FAERS Safety Report 7883923-0 (Version None)
Quarter: 2011Q4

REPORT INFORMATION
  Report Type: 
  Country: None (occurrence: None)
  Receive Date: 20111102
  Receipt Date: 20111026
  Transmission Date: 20120403
  Serious: No
  Sender: FDA-Public Use
  Company Number: US-JNJFOC-20111011692

PATIENT
  Sex: Male
  Weight: 89.36 kg

DRUGS (3)
  1. INVEGA SUSTENNA [Suspect]
     Indication: SCHIZOAFFECTIVE DISORDER
     Route: 030
     Dates: start: 20110901
  2. TOPAMAX [Concomitant]
     Indication: DRUG THERAPY
     Route: 048
  3. ARTANE [Concomitant]
     Indication: EXTRAPYRAMIDAL DISORDER
     Route: 048

REACTIONS (1)
  - DRUG INEFFECTIVE [None]
